FAERS Safety Report 17536075 (Version 1)
Quarter: 2020Q1

REPORT INFORMATION
  Report Type: Spontaneous
  Country: US (occurrence: US)
  Receive Date: 20200313
  Receipt Date: 20200313
  Transmission Date: 20200409
  Serious: Yes (Other)
  Sender: FDA-Public Use
  Company Number: US-PRINSTON PHARMACEUTICAL INC.-2020PRN00074

PATIENT
  Sex: Female

DRUGS (2)
  1. PAROXETINE. [Suspect]
     Active Substance: PAROXETINE
     Dosage: 10 MG, 1X/DAY
     Dates: start: 202001, end: 202002
  2. PAROXETINE. [Suspect]
     Active Substance: PAROXETINE
     Dosage: 5 MG, 1X/DAY
     Dates: start: 202002

REACTIONS (10)
  - Memory impairment [Unknown]
  - Tremor [Unknown]
  - Pruritus [Unknown]
  - Depression [Unknown]
  - Abnormal dreams [Unknown]
  - Suicidal ideation [Unknown]
  - Anxiety [Unknown]
  - Drug ineffective [Not Recovered/Not Resolved]
  - Somnolence [Unknown]
  - Insomnia [Unknown]

NARRATIVE: CASE EVENT DATE: 2020
